FAERS Safety Report 13850291 (Version 1)
Quarter: 2017Q3

REPORT INFORMATION
  Report Type: Spontaneous
  Country: GB (occurrence: GB)
  Receive Date: 20170809
  Receipt Date: 20170809
  Transmission Date: 20171127
  Serious: Yes (Other)
  Sender: FDA-Public Use
  Company Number: GB-TEVA-793008ACC

PATIENT
  Sex: Female

DRUGS (1)
  1. QUININE [Suspect]
     Active Substance: QUININE
     Indication: MUSCLE SPASMS
     Dosage: 200MG
     Route: 048
     Dates: start: 20170712, end: 20170715

REACTIONS (2)
  - Photosensitivity reaction [Not Recovered/Not Resolved]
  - Sunburn [Unknown]
